FAERS Safety Report 11467596 (Version 1)
Quarter: 2015Q3

REPORT INFORMATION
  Report Type: Spontaneous
  Country: US (occurrence: None)
  Receive Date: 20150904
  Receipt Date: 20150904
  Transmission Date: 20151125
  Serious: Yes (Hospitalization)
  Sender: FDA-Public Use
  Company Number: None

PATIENT
  Age: 39 Year
  Sex: Female

DRUGS (7)
  1. LEVOTHYROXINE. [Concomitant]
     Active Substance: LEVOTHYROXINE
  2. PREDNISONE. [Concomitant]
     Active Substance: PREDNISONE
  3. AVONEX [Suspect]
     Active Substance: INTERFERON BETA-1A
     Indication: MULTIPLE SCLEROSIS
     Dates: start: 201112, end: 20140612
  4. GARCINIA CAMBOGIA [Suspect]
     Active Substance: HYDROXYCITRIC ACID
     Indication: WEIGHT DECREASED
     Dates: start: 201309, end: 201404
  5. MODAFINIL. [Concomitant]
     Active Substance: MODAFINIL
  6. RASPBERRY KETONES [Suspect]
     Active Substance: RASPBERRY KETONE
     Indication: WEIGHT DECREASED
     Dates: start: 201309, end: 201404
  7. OMEPRAZOLE. [Concomitant]
     Active Substance: OMEPRAZOLE

REACTIONS (1)
  - Drug-induced liver injury [None]

NARRATIVE: CASE EVENT DATE: 20140616
